FAERS Safety Report 9994896 (Version 1)
Quarter: 2014Q1

REPORT INFORMATION
  Report Type: Spontaneous
  Country: US (occurrence: US)
  Receive Date: 20140311
  Receipt Date: 20140311
  Transmission Date: 20141002
  Serious: Yes (Hospitalization)
  Sender: FDA-Public Use
  Company Number: US-BAYER-2014-034272

PATIENT
  Age: 29 Year
  Sex: Female

DRUGS (24)
  1. YASMIN [Suspect]
  2. ABILIFY [Concomitant]
     Dosage: 15 MG, DAILY AT A BED TIME
  3. ALBUTEROL [Concomitant]
  4. VITAMIN B COMPLEX WITH C [Concomitant]
  5. CALCIUM [Concomitant]
     Dosage: 500 PLUS
     Route: 048
  6. CYMBALTA [Concomitant]
     Dosage: 60 MG, QD
     Route: 048
  7. FLEXERIL [Concomitant]
     Dosage: 10 MG, PRN
  8. KLONOPIN [Concomitant]
     Dosage: 0.5 MG, BID
     Route: 048
  9. KLONOPIN [Concomitant]
     Dosage: 1 MG, HS
  10. LAMICTAL [Concomitant]
     Dosage: 200 MG, QD
     Route: 048
  11. LYRICA [Concomitant]
     Dosage: 200 MG, BID
     Route: 048
  12. MULTIVITAMIN [Concomitant]
  13. PEPCID [Concomitant]
     Dosage: 20 MG, BID
  14. PEPCID [Concomitant]
     Dosage: 200 MG, BID
  15. PERCOCET [Concomitant]
     Indication: FIBROMYALGIA
     Dosage: 7.5-500 MG AS NEEDED
     Route: 048
  16. PERCOCET [Concomitant]
     Indication: ABDOMINAL PAIN
  17. LISINOPRIL [Concomitant]
  18. SEROQUEL [Concomitant]
     Dosage: 50 MG, HS
     Route: 048
  19. DILAUDID [Concomitant]
     Dosage: 2 MG, UNK
     Route: 042
     Dates: start: 20100104
  20. ZOFRAN [Concomitant]
     Dosage: 8 MG, UNK
     Route: 042
     Dates: start: 20120104
  21. CIPRO [Concomitant]
     Dosage: 400 MG, EVERY 12 HOURS
  22. DIFLUCAN [Concomitant]
     Dosage: 200 MG, EVERY 12 HOURS
     Route: 042
  23. IRON [Concomitant]
     Dosage: 2 G, (IV AND ORAL)
  24. EPOGEN [Concomitant]

REACTIONS (6)
  - Axillary vein thrombosis [None]
  - Pulmonary embolism [None]
  - Deep vein thrombosis [None]
  - Deep vein thrombosis [None]
  - Thrombophlebitis superficial [None]
  - Subclavian vein thrombosis [None]
